FAERS Safety Report 16252153 (Version 1)
Quarter: 2019Q2

REPORT INFORMATION
  Report Type: Spontaneous
  Country: DE (occurrence: DE)
  Receive Date: 20190429
  Receipt Date: 20190429
  Transmission Date: 20190711
  Serious: Yes (Other)
  Sender: FDA-Public Use
  Company Number: DE-PFIZER INC-2019175788

PATIENT
  Age: 61 Year
  Sex: Male
  Weight: 112 kg

DRUGS (1)
  1. DETRUSITOL [Suspect]
     Active Substance: TOLTERODINE TARTRATE

REACTIONS (5)
  - Dizziness [Unknown]
  - Dry mouth [Unknown]
  - Haematochezia [Unknown]
  - Nausea [Unknown]
  - Acidosis [Unknown]
